FAERS Safety Report 9349548 (Version 1)
Quarter: 2013Q2

REPORT INFORMATION
  Report Type: Spontaneous
  Country: FR (occurrence: FR)
  Receive Date: 20130614
  Receipt Date: 20130614
  Transmission Date: 20140414
  Serious: Yes (Hospitalization)
  Sender: FDA-Public Use
  Company Number: FR-GLAXOSMITHKLINE-B0897144A

PATIENT
  Age: 48 Year
  Sex: Male

DRUGS (9)
  1. DEROXAT [Suspect]
     Indication: PRODUCT USED FOR UNKNOWN INDICATION
     Route: 048
  2. PARACETAMOL + CODEINE [Suspect]
     Indication: NECK PAIN
     Route: 048
     Dates: start: 2013
  3. MOGADON [Suspect]
     Indication: PRODUCT USED FOR UNKNOWN INDICATION
     Route: 048
  4. LYSANXIA [Suspect]
     Indication: PRODUCT USED FOR UNKNOWN INDICATION
     Route: 048
  5. STILNOX [Suspect]
     Route: 048
  6. XANAX [Suspect]
     Indication: PRODUCT USED FOR UNKNOWN INDICATION
     Route: 048
  7. MYOLASTAN [Suspect]
     Route: 048
  8. LAMALINE [Suspect]
     Route: 048
  9. DONORMYL [Concomitant]
     Dosage: 15MG TWICE PER DAY
     Route: 048

REACTIONS (7)
  - Withdrawal syndrome [Recovered/Resolved]
  - Drug dependence [Recovering/Resolving]
  - Drug abuse [Unknown]
  - Confusional state [Recovered/Resolved]
  - Agitation [Recovered/Resolved]
  - Delusion [Recovered/Resolved]
  - Mood swings [Unknown]
